FAERS Safety Report 5429450-1 (Version None)
Quarter: 2007Q3

REPORT INFORMATION
  Report Type: 
  Country: None (occurrence: None)
  Receive Date: 20070829
  Receipt Date: 20070820
  Transmission Date: 20080115
  Serious: Yes (Hospitalization)
  Sender: FDA-Public Use
  Company Number: US-JNJFOC-20070804775

PATIENT
  Sex: Female
  Weight: 76.2 kg

DRUGS (8)
  1. DURAGESIC-100 [Suspect]
     Indication: PAIN
     Route: 062
  2. FENTANYL TRANSDERMAL SYSTEM [Suspect]
     Indication: PAIN
     Route: 062
  3. ENBREL [Concomitant]
     Indication: RHEUMATOID ARTHRITIS
     Route: 058
  4. METHOTREXATE [Concomitant]
     Indication: IMMUNE SYSTEM DISORDER
     Route: 065
  5. IMITREX [Concomitant]
     Indication: MIGRAINE
     Route: 048
  6. AMBIEN [Concomitant]
     Indication: SLEEP DISORDER
     Dosage: AT BEDTIME
     Route: 048
  7. ZOFRAN [Concomitant]
     Indication: NAUSEA
     Route: 048
  8. PERCOCET [Concomitant]
     Indication: PAIN
     Dosage: 10/325MG
     Route: 048

REACTIONS (6)
  - APPLICATION SITE BURN [None]
  - CHRONIC OBSTRUCTIVE PULMONARY DISEASE [None]
  - INAPPROPRIATE SCHEDULE OF DRUG ADMINISTRATION [None]
  - NASOPHARYNGITIS [None]
  - PNEUMONIA [None]
  - WRONG TECHNIQUE IN DRUG USAGE PROCESS [None]
